FAERS Safety Report 7971402-1 (Version None)
Quarter: 2011Q4

REPORT INFORMATION
  Report Type: 
  Country: None (occurrence: None)
  Receive Date: 20111212
  Receipt Date: 20111206
  Transmission Date: 20120403
  Serious: Yes (Other)
  Sender: FDA-Public Use
  Company Number: JP-MERCK-1111USA01608

PATIENT
  Age: 62 Year
  Sex: Female

DRUGS (9)
  1. SINEMET [Suspect]
     Indication: PARKINSON'S DISEASE
     Dosage: 100MG AFTER SUPPER 150MG AFTER LUNCH 150MG AFTER BREAKFAST
     Route: 048
     Dates: start: 20100507, end: 20100602
  2. SINEMET [Suspect]
     Route: 048
     Dates: start: 20100311, end: 20100328
  3. LIPITOR [Concomitant]
     Route: 048
     Dates: start: 20040501
  4. PRAVASTATIN SODIUM [Concomitant]
     Route: 048
     Dates: start: 20100201
  5. SINEMET [Suspect]
     Route: 048
     Dates: start: 20100409, end: 20100422
  6. SINEMET [Suspect]
     Dosage: 200MG, 100MG, 100MG
     Route: 048
     Dates: start: 20100423, end: 20100506
  7. METHYCOBAL [Concomitant]
     Route: 048
     Dates: start: 20100108
  8. SINEMET [Suspect]
     Dosage: 100MG, 50MG, 50MG
     Route: 048
     Dates: start: 20100329, end: 20100408
  9. GASMOTIN [Concomitant]
     Route: 048
     Dates: start: 20100507

REACTIONS (2)
  - ROAD TRAFFIC ACCIDENT [None]
  - SUDDEN ONSET OF SLEEP [None]
